FAERS Safety Report 10087862 (Version 1)
Quarter: 2014Q2

REPORT INFORMATION
  Report Type: Spontaneous
  Country: US (occurrence: US)
  Receive Date: 20140418
  Receipt Date: 20140418
  Transmission Date: 20141212
  Serious: No
  Sender: FDA-Public Use
  Company Number: US-PURDUE-USA-2014-0111639

PATIENT
  Sex: Female

DRUGS (7)
  1. OXYCONTIN (NDA 22-272) [Suspect]
     Indication: PRODUCT USED FOR UNKNOWN INDICATION
     Route: 048
  2. LYRICA [Concomitant]
     Indication: PAIN
     Dosage: 75 MG, BID
     Route: 048
  3. EFFEXOR XR [Concomitant]
     Indication: PRODUCT USED FOR UNKNOWN INDICATION
     Dosage: 150 MG, BID
     Route: 048
  4. SEROQUEL XR [Concomitant]
     Indication: PRODUCT USED FOR UNKNOWN INDICATION
     Dosage: 400 MG, QHS
     Route: 048
  5. CYCLOBENZAPRINE [Concomitant]
     Indication: MUSCLE SPASMS
     Dosage: 10 MG, PRN 2-3 TIMES DAILY
     Route: 048
  6. DICLOFENAC SODIUM [Concomitant]
     Indication: PAIN
     Dosage: 75 MG, BID
     Route: 048
  7. DICLOFENAC SODIUM [Concomitant]
     Indication: INFLAMMATION

REACTIONS (2)
  - Drug hypersensitivity [Unknown]
  - Urticaria [Unknown]
